FAERS Safety Report 9238420 (Version 1)
Quarter: 2013Q2

REPORT INFORMATION
  Report Type: Spontaneous
  Country: US (occurrence: None)
  Receive Date: 20130416
  Receipt Date: 20130416
  Transmission Date: 20140414
  Serious: Yes (Hospitalization)
  Sender: FDA-Public Use
  Company Number: COL_13441_2013

PATIENT
  Sex: Female

DRUGS (1)
  1. COLGATE OPTIC WHITE - SPARKLING MINT [Suspect]
     Indication: DENTAL CARIES
     Dosage: PEA SIZED AMOUNT/ONCE/ORAL
     Route: 048
     Dates: start: 20121217, end: 20121217

REACTIONS (3)
  - Swollen tongue [None]
  - Mucosal inflammation [None]
  - Lymphadenopathy [None]
